FAERS Safety Report 9585716 (Version 2)
Quarter: 2013Q4

REPORT INFORMATION
  Report Type: Spontaneous
  Country: BR (occurrence: BR)
  Receive Date: 20131003
  Receipt Date: 20131003
  Transmission Date: 20140711
  Serious: Yes (Other)
  Sender: FDA-Public Use
  Company Number: BR-AMGEN-BRASP2013046518

PATIENT
  Age: 61 Year
  Sex: Male
  Weight: 82 kg

DRUGS (2)
  1. VECTIBIX [Suspect]
     Indication: PRODUCT USED FOR UNKNOWN INDICATION
     Dosage: 3 MG/KG, EVERY 14 DAYS
     Route: 042
  2. LABIRIN [Concomitant]
     Dosage: UNK

REACTIONS (5)
  - Renal impairment [Unknown]
  - Surgery [Unknown]
  - Skin lesion [Unknown]
  - Dermatitis acneiform [Unknown]
  - Skin reaction [Unknown]
